FAERS Safety Report 8485966-5 (Version None)
Quarter: 2012Q3

REPORT INFORMATION
  Report Type: 
  Country: None (occurrence: None)
  Receive Date: 20120703
  Receipt Date: 20120618
  Transmission Date: 20120928
  Serious: Yes (Hospitalization, Other)
  Sender: FDA-Public Use
  Company Number: IN-VALEANT-2012VX002773

PATIENT
  Sex: Female

DRUGS (5)
  1. SURFACTANT [Concomitant]
     Route: 065
  2. NUTRACORT [Suspect]
     Indication: LUNG DISORDER
     Route: 042
  3. NUTRACORT [Suspect]
     Route: 065
  4. NUTRACORT [Suspect]
     Indication: NEONATAL RESPIRATORY DISTRESS SYNDROME
     Route: 042
  5. NUTRACORT [Suspect]
     Route: 065

REACTIONS (2)
  - HYPERTROPHIC CARDIOMYOPATHY [None]
  - CARDIAC MURMUR [None]
